FAERS Safety Report 20653430 (Version 1)
Quarter: 2022Q1

REPORT INFORMATION
  Report Type: Spontaneous
  Country: CN (occurrence: None)
  Receive Date: 20220330
  Receipt Date: 20220330
  Transmission Date: 20220423
  Serious: Yes (Other)
  Sender: FDA-Public Use
  Company Number: CN-ROCHE-3056524

PATIENT
  Age: 66 Year
  Sex: Male

DRUGS (11)
  1. TECENTRIQ [Suspect]
     Active Substance: ATEZOLIZUMAB
     Indication: Lung neoplasm malignant
     Dosage: 21 DAYS AS A CYCLE
     Route: 065
     Dates: start: 20210227
  2. TECENTRIQ [Suspect]
     Active Substance: ATEZOLIZUMAB
     Route: 065
     Dates: start: 20210812
  3. TECENTRIQ [Suspect]
     Active Substance: ATEZOLIZUMAB
     Dosage: 21 DAYS AS A CYCLE
     Route: 065
     Dates: start: 20211027
  4. TECENTRIQ [Suspect]
     Active Substance: ATEZOLIZUMAB
     Dosage: 21 DAYS AS A CYCLE
     Route: 065
     Dates: start: 20211214
  5. AVASTIN [Suspect]
     Active Substance: BEVACIZUMAB
     Indication: Lung neoplasm malignant
     Dosage: 21 DAYS AS A CYCLE
     Route: 065
     Dates: start: 20211214
  6. ETOPOSIDE [Suspect]
     Active Substance: ETOPOSIDE
     Indication: Lung neoplasm malignant
     Dosage: 21 DAYS AS A CYCLE
     Route: 065
     Dates: start: 20210227, end: 20210717
  7. ETOPOSIDE [Suspect]
     Active Substance: ETOPOSIDE
     Dosage: 21 DAYS AS A CYCLE
     Route: 065
     Dates: start: 20211027
  8. CARBOPLATIN [Suspect]
     Active Substance: CARBOPLATIN
     Indication: Lung neoplasm malignant
     Dosage: 21 DAYS AS A CYCLE
     Route: 065
     Dates: start: 20210227, end: 20210717
  9. CARBOPLATIN [Suspect]
     Active Substance: CARBOPLATIN
     Dosage: 21 DAYS AS A CYCLE
     Route: 065
     Dates: start: 20211027
  10. IRINOTECAN [Suspect]
     Active Substance: IRINOTECAN
     Indication: Lung neoplasm malignant
     Dosage: 21 DAYS AS A CYCLE
     Route: 065
     Dates: start: 20211214, end: 20220213
  11. NEDAPLATIN [Suspect]
     Active Substance: NEDAPLATIN
     Indication: Lung neoplasm malignant
     Dosage: 21 DAYS AS A CYCLE
     Route: 065
     Dates: start: 20211214, end: 20220213

REACTIONS (3)
  - Myelosuppression [Unknown]
  - Fatigue [Unknown]
  - Off label use [Unknown]
